FAERS Safety Report 5265299-0 (Version None)
Quarter: 2007Q1

REPORT INFORMATION
  Report Type: 
  Country: None (occurrence: None)
  Receive Date: 20061214
  Receipt Date: 20040421
  Transmission Date: 20070707
  Serious: Yes (Other)
  Sender: FDA-Public Use
  Company Number: 2004UW08374

PATIENT

DRUGS (2)
  1. PULMICORT RESPULES [Suspect]
     Dosage: 0.25 MG IH
     Route: 055
  2. PULMICORT RESPULES [Suspect]
     Dosage: 0.5 MG IH
     Route: 055

REACTIONS (1)
  - MEDICATION ERROR [None]
